FAERS Safety Report 8893147 (Version 1)
Quarter: 2012Q4

REPORT INFORMATION
  Report Type: Spontaneous
  Country: US (occurrence: None)
  Receive Date: 20121106
  Receipt Date: 20121106
  Transmission Date: 20130627
  Serious: Yes (Life-Threatening, Hospitalization)
  Sender: FDA-Public Use
  Company Number: None

PATIENT
  Age: 62 Year
  Sex: Male
  Weight: 92.31 kg

DRUGS (34)
  1. BRENTUXIMAB VEDOTIN [Suspect]
     Indication: ACUTE GRAFT VERSUS HOST DISEASE
     Dosage: 0.9 mg/kg IV weekly x3; 10/11, 10/19, 10/26/12
  2. LEVOPHED [Concomitant]
  3. NEUPOGEN [Concomitant]
  4. VANCOMYCIN [Concomitant]
  5. CHOLECALCIFEROL [Concomitant]
  6. AQUAPHOR [Concomitant]
  7. VORICONAZOLE [Concomitant]
  8. NYSTATIN SUSPENSION [Concomitant]
  9. TRYPSIN - BALSAM PERU- C [Concomitant]
  10. IMIPENEM-CILASTATIN [Concomitant]
  11. MEPRON SUSPENSION [Concomitant]
  12. ATORVASTATIN [Concomitant]
  13. INSULIN REGULAR HUMAN [Concomitant]
  14. CENTRAL TPN [Concomitant]
  15. FENTANYL CITRATE [Concomitant]
  16. PRISMASOL BGK [Concomitant]
  17. ACYCLOVIR [Concomitant]
  18. DUONEB [Concomitant]
  19. POTASSIUM CHLORIDE [Concomitant]
  20. SODIUM PHOSPHATE [Concomitant]
  21. LACRI-LUBE OINTMENT [Concomitant]
  22. TEARS NATURALE [Concomitant]
  23. CHLORHEXIDINE MOUTHWASH [Concomitant]
  24. FAMOTIDINE [Concomitant]
  25. SOLUMEDROL [Concomitant]
  26. VERSED 1 [Concomitant]
  27. VITAMIN A + D [Concomitant]
  28. EUCERIN CREAM [Concomitant]
  29. DOCUSATE SODIUM [Concomitant]
  30. SENNOSIDES [Concomitant]
  31. FENTANYL CITRATE [Concomitant]
  32. SODIUM CHLORIDE [Concomitant]
  33. LIDOCAINE HCL [Concomitant]
  34. DEXTROSE [Concomitant]

REACTIONS (18)
  - Neutropenia [None]
  - Hypotension [None]
  - Pyrexia [None]
  - Multi-organ failure [None]
  - Anaemia [None]
  - Septic shock [None]
  - Bacteraemia [None]
  - Fungal infection [None]
  - Haemorrhage [None]
  - Renal failure acute [None]
  - Pleural effusion [None]
  - Metabolic acidosis [None]
  - Respiratory failure [None]
  - Faecal volume increased [None]
  - Graft versus host disease [None]
  - Disease progression [None]
  - Pancytopenia [None]
  - Somnolence [None]
